FAERS Safety Report 14378029 (Version 2)
Quarter: 2018Q1

REPORT INFORMATION
  Report Type: Spontaneous
  Country: US (occurrence: US)
  Receive Date: 20180111
  Receipt Date: 20180116
  Transmission Date: 20180509
  Serious: No
  Sender: FDA-Public Use
  Company Number: US-BIOMARINAP-US-2018-116643

PATIENT
  Sex: Female

DRUGS (1)
  1. VIMIZIM [Suspect]
     Active Substance: ELOSULFASE ALFA
     Indication: PRODUCT USED FOR UNKNOWN INDICATION
     Route: 042

REACTIONS (5)
  - White blood cell count increased [Unknown]
  - Pharyngeal erythema [Unknown]
  - Catheter site pain [Unknown]
  - Pain [Unknown]
  - Abnormal behaviour [Unknown]
